FAERS Safety Report 17482867 (Version 1)
Quarter: 2020Q1

REPORT INFORMATION
  Report Type: Spontaneous
  Country: US (occurrence: US)
  Receive Date: 20200302
  Receipt Date: 20200302
  Transmission Date: 20200409
  Serious: Yes (Death)
  Sender: FDA-Public Use
  Company Number: US-PFIZER INC-2020091978

PATIENT
  Age: 59 Year
  Sex: Female
  Weight: 63.5 kg

DRUGS (1)
  1. IBRANCE [Suspect]
     Active Substance: PALBOCICLIB
     Indication: BREAST CANCER METASTATIC
     Dosage: 100 MG, CYCLIC(21 DAYS AND STOP FOR 7 DAYS)
     Dates: start: 2019

REACTIONS (5)
  - Thrombocytopenia [Fatal]
  - Dyspnoea [Unknown]
  - Pulmonary alveolar haemorrhage [Fatal]
  - Pancytopenia [Fatal]
  - Neoplasm progression [Fatal]
